FAERS Safety Report 23334713 (Version 10)
Quarter: 2024Q3

REPORT INFORMATION
  Report Type: Other
  Country: US (occurrence: US)
  Receive Date: 20231224
  Receipt Date: 20240716
  Transmission Date: 20241017
  Serious: Yes (Other)
  Sender: TRAVERE THERAPEUTICS
  Company Number: US-TRAVERE-2023TVT00813

PATIENT
  Age: 44 Year
  Sex: Female
  Weight: 90.72 kg

DRUGS (9)
  1. FILSPARI [Suspect]
     Active Substance: SPARSENTAN
     Indication: IgA nephropathy
     Dosage: EXPIRY DATE: 31-AUG-2025
     Route: 048
     Dates: start: 20231013
  2. LASIX [Concomitant]
     Active Substance: FUROSEMIDE
  3. GOSERELIN [Concomitant]
     Active Substance: GOSERELIN
  4. ARIMIDEX [Concomitant]
     Active Substance: ANASTROZOLE
  5. LOVAZA [Concomitant]
     Active Substance: OMEGA-3-ACID ETHYL ESTERS
  6. VITAMINS [Concomitant]
     Active Substance: VITAMINS
  7. TORSEMIDE [Concomitant]
     Active Substance: TORSEMIDE
  8. vitamin D-400 [Concomitant]
  9. DIPHENHYDRAMINE HYDROCHLORIDE [Concomitant]
     Active Substance: DIPHENHYDRAMINE HYDROCHLORIDE

REACTIONS (11)
  - Breast cancer female [Recovering/Resolving]
  - Peripheral swelling [None]
  - Dyspepsia [None]
  - Fluid retention [None]
  - Tendonitis [None]
  - Illness [Unknown]
  - Therapy interrupted [Unknown]
  - Oedema peripheral [Unknown]
  - Limb discomfort [Unknown]
  - Urinary tract infection [None]
  - Blood potassium increased [None]

NARRATIVE: CASE EVENT DATE: 20240623
